FAERS Safety Report 9476367 (Version 5)
Quarter: 2013Q4

REPORT INFORMATION
  Report Type: Report from Study
  Country: ES (occurrence: ES)
  Receive Date: 20130826
  Receipt Date: 20131015
  Transmission Date: 20140711
  Serious: Yes (Hospitalization)
  Sender: FDA-Public Use
  Company Number: ES-ROCHE-1239300

PATIENT
  Age: 67 Year
  Sex: Female
  Weight: 65.2 kg

DRUGS (2)
  1. TRASTUZUMAB EMTANSINE [Suspect]
     Indication: BREAST CANCER METASTATIC
     Dosage: LAST DOSE PRIOR TO ONSET OF SAE ON 25/JUL/2013
     Route: 042
     Dates: start: 20130524, end: 20130807
  2. OMEPRAZOL [Concomitant]
     Route: 065
     Dates: start: 2007

REACTIONS (2)
  - Abdominal pain [Recovered/Resolved]
  - Thrombocytopenia [Recovered/Resolved]
